FAERS Safety Report 15220109 (Version 1)
Quarter: 2018Q3

REPORT INFORMATION
  Report Type: Spontaneous
  Country: US (occurrence: US)
  Receive Date: 20180731
  Receipt Date: 20180731
  Transmission Date: 20181010
  Serious: No
  Sender: FDA-Public Use
  Company Number: US-PFIZER INC-2018304524

PATIENT
  Age: 61 Year
  Sex: Female

DRUGS (1)
  1. XELJANZ XR [Suspect]
     Active Substance: TOFACITINIB CITRATE
     Indication: RHEUMATOID ARTHRITIS
     Dosage: 11 MG, 1X/DAY
     Route: 048
     Dates: start: 20180703

REACTIONS (5)
  - Fatigue [Unknown]
  - Dyspnoea [Not Recovered/Not Resolved]
  - Chromaturia [Unknown]
  - Condition aggravated [Not Recovered/Not Resolved]
  - Urine analysis abnormal [Unknown]

NARRATIVE: CASE EVENT DATE: 201807
